FAERS Safety Report 4875047-1 (Version None)
Quarter: 2006Q1

REPORT INFORMATION
  Report Type: 
  Country: None (occurrence: None)
  Receive Date: 20060109
  Receipt Date: 20060103
  Transmission Date: 20060701
  Serious: Yes (Hospitalization)
  Sender: FDA-Public Use
  Company Number: US-JNJFOC-20060100878

PATIENT
  Sex: Female
  Weight: 63.5 kg

DRUGS (5)
  1. DURAGESIC-100 [Suspect]
     Route: 062
     Dates: start: 20041201
  2. DURAGESIC-100 [Suspect]
     Route: 062
     Dates: start: 20041201
  3. BACLOFEN [Concomitant]
     Indication: MUSCLE SPASMS
     Dosage: 10 MG, 1/2-1 IN 24 HOURS, ORAL
     Route: 048
     Dates: start: 20031201
  4. RELAFEN [Concomitant]
     Indication: ANTIINFLAMMATORY THERAPY
     Route: 048
     Dates: start: 20051201
  5. OXYCODONE [Concomitant]
     Dosage: 30/975 MG, 3 IN 24 HOUR(S), ORAL
     Route: 048
     Dates: start: 20041201

REACTIONS (3)
  - BLOOD PRESSURE INCREASED [None]
  - JOINT STIFFNESS [None]
  - THERAPEUTIC RESPONSE DECREASED [None]
